FAERS Safety Report 4488042-1 (Version None)
Quarter: 2004Q4

REPORT INFORMATION
  Report Type: 
  Country: None (occurrence: None)
  Receive Date: 20041028
  Receipt Date: 20040817
  Transmission Date: 20050328
  Serious: Yes (Hospitalization, Other)
  Sender: FDA-Public Use
  Company Number: US-GLAXOSMITHKLINE-A0522458A

PATIENT
  Age: 81 Year
  Sex: Female
  Weight: 52.3 kg

DRUGS (7)
  1. LOTRONEX [Suspect]
     Dosage: 1MG PER DAY
     Route: 048
     Dates: start: 20040807, end: 20040809
  2. FOSAMAX [Concomitant]
     Dosage: 70MG WEEKLY
     Route: 048
  3. MICARDIS [Concomitant]
     Dosage: 80MG PER DAY
     Route: 048
  4. TOPROL-XL [Concomitant]
     Dosage: 25MG PER DAY
     Route: 048
  5. NORVASC [Concomitant]
     Dosage: 5MG PER DAY
     Route: 048
  6. QUESTRAN [Concomitant]
     Dosage: 4G PER DAY
     Route: 048
  7. ULTRAM [Concomitant]
     Dosage: 50MG PER DAY
     Route: 048

REACTIONS (9)
  - ABDOMINAL PAIN [None]
  - COLITIS ISCHAEMIC [None]
  - CONSTIPATION [None]
  - DIARRHOEA HAEMORRHAGIC [None]
  - NAUSEA [None]
  - PROCTALGIA [None]
  - PYREXIA [None]
  - RECTAL HAEMORRHAGE [None]
  - VOMITING [None]
